FAERS Safety Report 17266062 (Version 2)
Quarter: 2020Q1

REPORT INFORMATION
  Report Type: Report from Study
  Country: US (occurrence: US)
  Receive Date: 20200114
  Receipt Date: 20200320
  Transmission Date: 20200409
  Serious: Yes (Other)
  Sender: FDA-Public Use
  Company Number: US-EMD SERONO-9139605

PATIENT
  Sex: Female

DRUGS (3)
  1. REBIF [Suspect]
     Active Substance: INTERFERON BETA-1A
     Indication: MULTIPLE SCLEROSIS
     Route: 058
     Dates: start: 20100728, end: 2010
  2. REBIF [Suspect]
     Active Substance: INTERFERON BETA-1A
     Route: 058
     Dates: start: 20180613
  3. REBIF [Suspect]
     Active Substance: INTERFERON BETA-1A
     Route: 058
     Dates: start: 2010

REACTIONS (11)
  - Gastric ulcer [Unknown]
  - Gallbladder disorder [Unknown]
  - Diverticulitis [Unknown]
  - Nephrolithiasis [Not Recovered/Not Resolved]
  - Gastric bypass [Unknown]
  - Depression [Unknown]
  - Procedural nausea [Not Recovered/Not Resolved]
  - Economic problem [Unknown]
  - Procedural pain [Not Recovered/Not Resolved]
  - Anal incontinence [Unknown]
  - Urinary incontinence [Unknown]

NARRATIVE: CASE EVENT DATE: 2017
